FAERS Safety Report 8840822 (Version 3)
Quarter: 2012Q4

REPORT INFORMATION
  Report Type: Report from Study
  Country: US (occurrence: US)
  Receive Date: 20121015
  Receipt Date: 20121123
  Transmission Date: 20130627
  Serious: Yes (Hospitalization)
  Sender: FDA-Public Use
  Company Number: US-ROCHE-1140187

PATIENT
  Sex: Male

DRUGS (3)
  1. PEGASYS [Suspect]
     Indication: CHRONIC HEPATITIS C
     Route: 058
     Dates: start: 20120809
  2. COPEGUS [Suspect]
     Indication: CHRONIC HEPATITIS C
     Dosage: in divided doses
     Route: 065
     Dates: start: 20120809
  3. TELAPREVIR [Suspect]
     Indication: CHRONIC HEPATITIS C
     Route: 065
     Dates: start: 20120809

REACTIONS (7)
  - Convulsion [Unknown]
  - Rhabdomyolysis [Unknown]
  - Muscular weakness [Unknown]
  - Pyrexia [Unknown]
  - Infusion site extravasation [Unknown]
  - Muscle spasms [Unknown]
  - Abdominal pain upper [Unknown]
